FAERS Safety Report 18388116 (Version 1)
Quarter: 2020Q4

REPORT INFORMATION
  Report Type: Spontaneous
  Country: AU (occurrence: AU)
  Receive Date: 20201015
  Receipt Date: 20201015
  Transmission Date: 20210114
  Serious: Yes (Other)
  Sender: FDA-Public Use
  Company Number: AU-ASTRAZENECA-2020SF32149

PATIENT
  Sex: Male

DRUGS (3)
  1. DIASP SR??(DIPYRIDAMOLE / ASPIRIN) [Suspect]
     Active Substance: ASPIRIN\DIPYRIDAMOLE
     Route: 065
  2. ASASANTIN SR [Suspect]
     Active Substance: ASPIRIN\DIPYRIDAMOLE
     Dosage: TWO TIMES A DAY
     Route: 065
  3. BRILINTA [Suspect]
     Active Substance: TICAGRELOR
     Route: 048

REACTIONS (1)
  - Transient ischaemic attack [Unknown]
